FAERS Safety Report 16811423 (Version 1)
Quarter: 2019Q3

REPORT INFORMATION
  Report Type: Report from Study
  Country: ES (occurrence: ES)
  Receive Date: 20190916
  Receipt Date: 20190916
  Transmission Date: 20191005
  Serious: Yes (Other)
  Sender: FDA-Public Use
  Company Number: ES-PFIZER INC-2018425009

PATIENT
  Age: 57 Year
  Sex: Female

DRUGS (2)
  1. DOXORUBICIN HCL [Suspect]
     Active Substance: DOXORUBICIN HYDROCHLORIDE
     Indication: OVARIAN CANCER RECURRENT
     Dosage: 52.5 (UNITS NOT MENTIONED), CYCLE 1-9
     Route: 042
     Dates: start: 20180307, end: 20180822
  2. TRABECTEDIN [Suspect]
     Active Substance: TRABECTEDIN
     Indication: OVARIAN CANCER RECURRENT
     Dosage: 1.93 MG, CYCLIC
     Route: 042
     Dates: start: 20180307, end: 20180822

REACTIONS (5)
  - Asthenia [Recovered/Resolved]
  - Vena cava thrombosis [Not Recovered/Not Resolved]
  - Vascular device infection [Not Recovered/Not Resolved]
  - Device related infection [Recovered/Resolved]
  - Mucosal inflammation [Recovered/Resolved]

NARRATIVE: CASE EVENT DATE: 20180308
